FAERS Safety Report 7216107-X (Version None)
Quarter: 2011Q1

REPORT INFORMATION
  Report Type: 
  Country: None (occurrence: None)
  Receive Date: 20110105
  Receipt Date: 20110105
  Transmission Date: 20110831
  Serious: Yes (Life-Threatening, Disabling, Other)
  Sender: FDA-Public Use
  Company Number: None

PATIENT
  Age: 53 Year
  Sex: Female
  Weight: 70.7611 kg

DRUGS (1)
  1. CYMBALTA [Suspect]
     Indication: PAIN
     Dosage: 60 MG 1 EACH DAY PO
     Route: 048
     Dates: start: 20070307, end: 20100824

REACTIONS (11)
  - ACTIVITIES OF DAILY LIVING IMPAIRED [None]
  - SLEEP APNOEA SYNDROME [None]
  - CONFUSIONAL STATE [None]
  - AMNESIA [None]
  - HYPOPHAGIA [None]
  - FEAR [None]
  - COMMUNICATION DISORDER [None]
  - DISORIENTATION [None]
  - PARANOIA [None]
  - PARAESTHESIA [None]
  - DRUG WITHDRAWAL SYNDROME [None]
